FAERS Safety Report 17703657 (Version 1)
Quarter: 2020Q2

REPORT INFORMATION
  Report Type: Spontaneous
  Country: MY (occurrence: MY)
  Receive Date: 20200424
  Receipt Date: 20200424
  Transmission Date: 20200714
  Serious: Yes (Death, Life-Threatening, Hospitalization, Other)
  Sender: FDA-Public Use
  Company Number: MY-SA-2020SA090058

PATIENT
  Age: 71 Year
  Sex: Female

DRUGS (6)
  1. LEFLUNOMIDE. [Suspect]
     Active Substance: LEFLUNOMIDE
     Indication: RHEUMATOID ARTHRITIS
     Dosage: UNK
  2. CYCLOPHOSPHAMIDE. [Suspect]
     Active Substance: CYCLOPHOSPHAMIDE
     Indication: RHEUMATOID VASCULITIS
  3. PREDNISOLONE. [Suspect]
     Active Substance: PREDNISOLONE
     Indication: RHEUMATOID VASCULITIS
  4. ETORICOXIB. [Concomitant]
     Active Substance: ETORICOXIB
     Indication: PAIN MANAGEMENT
  5. CYCLOPHOSPHAMIDE. [Suspect]
     Active Substance: CYCLOPHOSPHAMIDE
     Indication: NEUROPATHY PERIPHERAL
     Dosage: 2 DF, QW (TWO-WEEKLY)
     Route: 042
  6. PREDNISOLONE. [Suspect]
     Active Substance: PREDNISOLONE
     Indication: NEUROPATHY PERIPHERAL
     Dosage: HIGH DOSE

REACTIONS (9)
  - Staphylococcal bacteraemia [Recovering/Resolving]
  - Pain [Recovering/Resolving]
  - Trichosporon infection [Fatal]
  - Muscle abscess [Recovering/Resolving]
  - Osteomyelitis bacterial [Recovering/Resolving]
  - Back pain [Recovering/Resolving]
  - Arthralgia [Recovering/Resolving]
  - Weight bearing difficulty [Recovering/Resolving]
  - Skin ulcer [Unknown]
